FAERS Safety Report 21065954 (Version 3)
Quarter: 2022Q3

REPORT INFORMATION
  Report Type: Spontaneous
  Country: US (occurrence: US)
  Receive Date: 20220711
  Receipt Date: 20220913
  Transmission Date: 20221026
  Serious: Yes (Other)
  Sender: FDA-Public Use
  Company Number: US-PFIZER INC-PV202200018793

PATIENT
  Age: 57 Year
  Sex: Male

DRUGS (5)
  1. BESPONSA [Suspect]
     Active Substance: INOTUZUMAB OZOGAMICIN
     Indication: Acute lymphocytic leukaemia
     Dosage: 0.9 MG, WEEKLY (0.9 MG IV WEEKLY X 3)
     Route: 042
     Dates: start: 20220309, end: 20220504
  2. ACYCLOVIR [Concomitant]
     Active Substance: ACYCLOVIR
     Indication: Antiviral prophylaxis
     Dosage: 400 MG, 2X/DAY
     Dates: start: 20220304
  3. URSODIOL [Concomitant]
     Active Substance: URSODIOL
     Indication: Liver function test increased
     Dosage: 500 MG, 3X/DAY
     Dates: start: 20220318
  4. URSODIOL [Concomitant]
     Active Substance: URSODIOL
     Indication: Blood bilirubin increased
  5. DEXAMETHASONE [Concomitant]
     Active Substance: DEXAMETHASONE

REACTIONS (3)
  - Hyperbilirubinaemia [Not Recovered/Not Resolved]
  - Alanine aminotransferase increased [Recovering/Resolving]
  - Aspartate aminotransferase increased [Unknown]

NARRATIVE: CASE EVENT DATE: 20220513
